FAERS Safety Report 24562775 (Version 1)
Quarter: 2024Q4

REPORT INFORMATION
  Report Type: Spontaneous
  Country: JP (occurrence: JP)
  Receive Date: 20241029
  Receipt Date: 20241029
  Transmission Date: 20250114
  Serious: Yes (Other)
  Sender: NOVARTIS
  Company Number: JP-002147023-NVSJ2024JP012702

PATIENT
  Sex: Male

DRUGS (3)
  1. ENTRESTO [Suspect]
     Active Substance: SACUBITRIL\VALSARTAN
     Indication: Cardiac failure chronic
     Dosage: UNK
     Route: 048
     Dates: start: 202410, end: 202410
  2. ENTRESTO [Suspect]
     Active Substance: SACUBITRIL\VALSARTAN
     Indication: Hypertension
     Dosage: 200 MG, BID, IN THE MORNING AND EVENING
     Route: 048
     Dates: start: 202410, end: 202410
  3. ENTRESTO [Suspect]
     Active Substance: SACUBITRIL\VALSARTAN
     Dosage: 200 MG, QD, JUST IN THE MORNING
     Route: 048
     Dates: start: 202410

REACTIONS (7)
  - Cerebral infarction [Unknown]
  - Aphasia [Unknown]
  - Acute kidney injury [Unknown]
  - Dysphonia [Unknown]
  - Fall [Unknown]
  - Dysphagia [Unknown]
  - Wrong technique in product usage process [Unknown]

NARRATIVE: CASE EVENT DATE: 20241001
